FAERS Safety Report 11603394 (Version 1)
Quarter: 2015Q4

REPORT INFORMATION
  Report Type: Spontaneous
  Country: US (occurrence: None)
  Receive Date: 20151005
  Receipt Date: 20151005
  Transmission Date: 20160304
  Serious: Yes (Disabling)
  Sender: FDA-Public Use
  Company Number: None

PATIENT
  Age: 24 Year
  Sex: Male
  Weight: 68.04 kg

DRUGS (1)
  1. CIPRO [Suspect]
     Active Substance: CIPROFLOXACIN HYDROCHLORIDE
     Indication: INFECTION
     Dosage: 1 PILL
     Route: 048

REACTIONS (7)
  - Sleep terror [None]
  - Arthropathy [None]
  - Muscle tightness [None]
  - Muscle atrophy [None]
  - Muscle twitching [None]
  - Burning sensation [None]
  - Tendonitis [None]

NARRATIVE: CASE EVENT DATE: 20110216
